FAERS Safety Report 23528747 (Version 2)
Quarter: 2024Q2

REPORT INFORMATION
  Report Type: Spontaneous
  Country: US (occurrence: US)
  Receive Date: 20240215
  Receipt Date: 20240426
  Transmission Date: 20240715
  Serious: No
  Sender: FDA-Public Use
  Company Number: US-GLK-002287

PATIENT
  Sex: Male

DRUGS (4)
  1. PHOTREXA [Suspect]
     Active Substance: RIBOFLAVIN 5^-PHOSPHATE SODIUM
     Indication: Keratoconus
     Route: 047
  2. PHOTREXA VISCOUS [Suspect]
     Active Substance: RIBOFLAVIN 5^-PHOSPHATE SODIUM
     Indication: Keratoconus
     Route: 047
  3. PREDNISONE [Concomitant]
     Active Substance: PREDNISONE
     Dosage: 4 TIMES A DAY FOR 7 DAYS, 3 TIMES A DAY FOR NEXT 7 DAYS, 2 TIMES A DAY FOR NEXT 7 DAYS AND 1 TIME...
  4. ACUFLEX [Concomitant]
     Dosage: 4 TIMES A DAY FOR 7 DAYS

REACTIONS (2)
  - Infective keratitis [Unknown]
  - Corneal infiltrates [Unknown]
